FAERS Safety Report 7107525-9 (Version None)
Quarter: 2010Q4

REPORT INFORMATION
  Report Type: 
  Country: None (occurrence: None)
  Receive Date: 20101117
  Receipt Date: 20101105
  Transmission Date: 20110411
  Serious: Yes (Other)
  Sender: FDA-Public Use
  Company Number: CH-JNJFOC-20101101568

PATIENT
  Age: 72 Year
  Sex: Male

DRUGS (12)
  1. RISPERDAL [Suspect]
     Indication: ILL-DEFINED DISORDER
     Route: 048
  2. DAFALGAN [Suspect]
     Indication: ILL-DEFINED DISORDER
     Route: 048
  3. ANXIOLIT [Suspect]
     Indication: AGITATION
     Route: 048
  4. ANXIOLIT [Suspect]
     Indication: RESTLESSNESS
     Route: 048
  5. CIPROXIN NOS [Concomitant]
     Indication: URINARY TRACT INFECTION
     Route: 048
  6. PHENYTOIN [Concomitant]
     Indication: EPILEPSY
     Route: 048
  7. CITALOPRAM [Concomitant]
     Indication: ILL-DEFINED DISORDER
     Route: 048
  8. DISTRANEURIN [Concomitant]
     Indication: ILL-DEFINED DISORDER
     Route: 048
  9. FOLIC ACID [Concomitant]
     Indication: ILL-DEFINED DISORDER
     Route: 065
  10. PANTOPRAZOLE SODIUM [Concomitant]
     Indication: ILL-DEFINED DISORDER
     Route: 065
  11. BECOTAL [Concomitant]
     Indication: ILL-DEFINED DISORDER
     Route: 048
  12. BENERVA [Concomitant]
     Indication: ILL-DEFINED DISORDER
     Route: 065

REACTIONS (2)
  - FIXED ERUPTION [None]
  - RASH ERYTHEMATOUS [None]
